FAERS Safety Report 20757418 (Version 3)
Quarter: 2022Q2

REPORT INFORMATION
  Report Type: Spontaneous
  Country: GB (occurrence: GB)
  Receive Date: 20220427
  Receipt Date: 20220608
  Transmission Date: 20220721
  Serious: Yes (Other)
  Sender: FDA-Public Use
  Company Number: GB-MYLANLABS-2022M1019127

PATIENT
  Age: 39 Year
  Sex: Male

DRUGS (2)
  1. CLOZARIL [Suspect]
     Active Substance: CLOZAPINE
     Indication: Schizophrenia
     Dosage: 125 MILLIGRAM, AM
     Route: 048
     Dates: start: 20180221
  2. CLOZARIL [Suspect]
     Active Substance: CLOZAPINE
     Dosage: 175 MILLIGRAM, PM
     Route: 048
     Dates: start: 20180221

REACTIONS (2)
  - Anaemia [Not Recovered/Not Resolved]
  - Full blood count abnormal [Unknown]

NARRATIVE: CASE EVENT DATE: 20220309
